FAERS Safety Report 8535919-3 (Version None)
Quarter: 2012Q3

REPORT INFORMATION
  Report Type: 
  Country: None (occurrence: None)
  Receive Date: 20120725
  Receipt Date: 20120720
  Transmission Date: 20120928
  Serious: Yes (Hospitalization, Other)
  Sender: FDA-Public Use
  Company Number: PHHY2012BR063201

PATIENT
  Sex: Male

DRUGS (1)
  1. FORMOTEROL FUMARATE [Suspect]
     Indication: EMPHYSEMA
     Dosage: 1 DF, UNK

REACTIONS (2)
  - ASTHMA [None]
  - PLEURAL EFFUSION [None]
